FAERS Safety Report 6669095-9 (Version None)
Quarter: 2010Q2

REPORT INFORMATION
  Report Type: 
  Country: None (occurrence: None)
  Receive Date: 20100402
  Receipt Date: 20100320
  Transmission Date: 20101027
  Serious: Yes (Other)
  Sender: FDA-Public Use
  Company Number: 009284

PATIENT
  Sex: Female
  Weight: 54 kg

DRUGS (5)
  1. CERTOLIZUMAB PEGOL (CERTOLIZUMAB PEGOL) [Suspect]
     Indication: RHEUMATOID ARTHRITIS
     Dosage: (200 MG 1X/2 WEEKS, CDP870-027 SUBCUTANEOUS); SEE IMAGE
     Route: 058
     Dates: start: 20050825, end: 20060810
  2. CERTOLIZUMAB PEGOL (CERTOLIZUMAB PEGOL) [Suspect]
     Indication: RHEUMATOID ARTHRITIS
     Dosage: (200 MG 1X/2 WEEKS, CDP870-027 SUBCUTANEOUS); SEE IMAGE
     Route: 058
     Dates: start: 20060828, end: 20100322
  3. METHOTREXATE [Concomitant]
  4. DICLOFENAC [Concomitant]
  5. MELOXICAM [Concomitant]

REACTIONS (2)
  - CHOLELITHIASIS [None]
  - LATENT TUBERCULOSIS [None]
